FAERS Safety Report 7219498-9 (Version None)
Quarter: 2011Q1

REPORT INFORMATION
  Report Type: 
  Country: None (occurrence: None)
  Receive Date: 20110111
  Receipt Date: 20110105
  Transmission Date: 20110831
  Serious: Yes (Hospitalization)
  Sender: FDA-Public Use
  Company Number: US-NOVOPROD-318386

PATIENT
  Sex: Male
  Weight: 74.83 kg

DRUGS (6)
  1. NOVOLOG [Suspect]
     Indication: TYPE 2 DIABETES MELLITUS
     Dosage: UNK
     Route: 058
     Dates: start: 20060101
  2. LEVOTHYROXINE SODIUM [Concomitant]
     Indication: PRODUCT USED FOR UNKNOWN INDICATION
     Dosage: 100 MCG TAB, QD
  3. SIMVASTATIN [Concomitant]
     Indication: PRODUCT USED FOR UNKNOWN INDICATION
     Dosage: 10 MG TABS, QD
  4. HUMALOG [Concomitant]
     Indication: PRODUCT USED FOR UNKNOWN INDICATION
     Dosage: 100 U/ML SOLN AS DIRECTED
  5. PLAVIX [Concomitant]
     Indication: PRODUCT USED FOR UNKNOWN INDICATION
     Dosage: 75 MG TABS, QD
  6. LANTUS [Concomitant]
     Indication: TYPE 2 DIABETES MELLITUS
     Dosage: 100 U/ML SOLN AS DIRECTED

REACTIONS (10)
  - BLOOD GLUCOSE INCREASED [None]
  - ENTEROCOCCAL INFECTION [None]
  - OSTEOMYELITIS [None]
  - GANGRENE [None]
  - DEVICE MALFUNCTION [None]
  - PERIPHERAL ISCHAEMIA [None]
  - STAPHYLOCOCCAL SEPSIS [None]
  - SKIN ULCER [None]
  - DEVICE RELATED SEPSIS [None]
  - FALL [None]
